FAERS Safety Report 7736619-X (Version None)
Quarter: 2011Q3

REPORT INFORMATION
  Report Type: 
  Country: None (occurrence: None)
  Receive Date: 20110908
  Receipt Date: 20110902
  Transmission Date: 20111222
  Serious: Yes (Hospitalization, Other)
  Sender: FDA-Public Use
  Company Number: SE-PFIZER INC-2011209362

PATIENT
  Age: 74 Year
  Sex: Male

DRUGS (10)
  1. CORDARONE [Suspect]
     Indication: ATRIAL FIBRILLATION
     Dosage: 600 MG DAILY
     Route: 048
     Dates: start: 20110522, end: 20110604
  2. SIMVASTATIN [Concomitant]
  3. METOPROLOL TARTRATE [Concomitant]
  4. NITROLINGUAL [Concomitant]
  5. LAMOTRIGINE [Suspect]
     Dosage: 600 MG DAILY
  6. ENALAPRIL [Concomitant]
  7. KEPPRA [Concomitant]
  8. WARFARIN SODIUM [Concomitant]
  9. FUROSEMIDE [Concomitant]
  10. DIGOXIN [Suspect]
     Dosage: 0.25 MG DAILY
     Dates: start: 20110522, end: 20110604

REACTIONS (5)
  - ATAXIA [None]
  - TREMOR [None]
  - ANTICONVULSANT DRUG LEVEL ABOVE THERAPEUTIC [None]
  - BALANCE DISORDER [None]
  - VOMITING [None]
